FAERS Safety Report 6603835-X (Version None)
Quarter: 2010Q1

REPORT INFORMATION
  Report Type: 
  Country: None (occurrence: None)
  Receive Date: 20100226
  Receipt Date: 20090216
  Transmission Date: 20100710
  Serious: No
  Sender: FDA-Public Use
  Company Number: A0768911A

PATIENT
  Age: 45 Year
  Sex: Female

DRUGS (3)
  1. LAMICTAL CD [Suspect]
     Indication: DEPRESSION
     Dosage: 25MG PER DAY
     Route: 048
     Dates: start: 20090213
  2. NEXIUM [Concomitant]
  3. GLUCOPHAGE [Concomitant]

REACTIONS (3)
  - BLISTER [None]
  - PRURITUS GENERALISED [None]
  - SKIN DISCOLOURATION [None]
